FAERS Safety Report 4939674-5 (Version None)
Quarter: 2006Q1

REPORT INFORMATION
  Report Type: 
  Country: None (occurrence: None)
  Receive Date: 20060310
  Receipt Date: 20051114
  Transmission Date: 20060701
  Serious: Yes (Hospitalization, Other)
  Sender: FDA-Public Use
  Company Number: US-MERCK-0511USA02737

PATIENT
  Age: 52 Year
  Sex: Female
  Weight: 68 kg

DRUGS (7)
  1. VIOXX [Suspect]
     Indication: OSTEOARTHRITIS
     Route: 048
     Dates: start: 20030701, end: 20050101
  2. PLAVIX [Concomitant]
     Route: 065
  3. ATIVAN [Concomitant]
     Route: 065
  4. ZOCOR [Concomitant]
     Route: 065
  5. ELAVIL [Concomitant]
     Route: 065
  6. ISONIAZID [Concomitant]
     Route: 065
  7. RIFAMPIN [Concomitant]
     Route: 065

REACTIONS (13)
  - CARDIAC FAILURE CONGESTIVE [None]
  - CARDIOVASCULAR DISORDER [None]
  - CEREBROVASCULAR ACCIDENT [None]
  - DEEP VEIN THROMBOSIS [None]
  - EXTRADURAL ABSCESS [None]
  - INFECTION [None]
  - INJURY [None]
  - MYOCARDIAL INFARCTION [None]
  - PULMONARY EMBOLISM [None]
  - RENAL FAILURE [None]
  - SUBCUTANEOUS ABSCESS [None]
  - THROMBOSIS [None]
  - TRANSIENT ISCHAEMIC ATTACK [None]
